FAERS Safety Report 5902883-2 (Version None)
Quarter: 2008Q3

REPORT INFORMATION
  Report Type: 
  Country: None (occurrence: None)
  Receive Date: 20080929
  Receipt Date: 20080929
  Transmission Date: 20090109
  Serious: No
  Sender: FDA-Public Use
  Company Number: None

PATIENT
  Age: 60 Year
  Sex: Female
  Weight: 52.1637 kg

DRUGS (1)
  1. ZYPREXA [Suspect]
     Indication: MANIA
     Dosage: ONE TABLET 2.5MG ONE AT BEDTIME PO, 2 NIGHTS 2 MANY
     Route: 048

REACTIONS (5)
  - AGITATION [None]
  - DIZZINESS [None]
  - DYSPNOEA [None]
  - MIGRAINE [None]
  - PAIN [None]
